FAERS Safety Report 9180142 (Version 1)
Quarter: 2013Q1

REPORT INFORMATION
  Report Type: Spontaneous
  Country: IN (occurrence: IN)
  Receive Date: 20130321
  Receipt Date: 20130321
  Transmission Date: 20140127
  Serious: Yes (Other)
  Sender: FDA-Public Use
  Company Number: PHHY2013IN025510

PATIENT
  Age: 45 Year
  Sex: Female

DRUGS (7)
  1. FLUOXETINE [Suspect]
     Indication: OBSESSIVE-COMPULSIVE DISORDER
     Dosage: 20 MG, UNK
  2. FLUOXETINE [Suspect]
     Dosage: 60 MG, QD
  3. QUETIAPINE [Concomitant]
     Indication: ANXIETY
  4. QUETIAPINE [Concomitant]
     Indication: SLEEP DISORDER
  5. ALPRAZOLAM [Concomitant]
     Indication: ANXIETY
  6. ALPRAZOLAM [Concomitant]
     Indication: SLEEP DISORDER
  7. CLOMIPRAMINE [Concomitant]

REACTIONS (2)
  - Neutropenia [Recovered/Resolved]
  - Respiratory tract infection [Recovered/Resolved]
